FAERS Safety Report 12818563 (Version 4)
Quarter: 2017Q1

REPORT INFORMATION
  Report Type: Spontaneous
  Country: GR (occurrence: GR)
  Receive Date: 20161006
  Receipt Date: 20170110
  Transmission Date: 20170428
  Serious: Yes (Hospitalization, Other)
  Sender: FDA-Public Use
  Company Number: PHHY2016GR136625

PATIENT
  Age: 8 Year
  Sex: Male

DRUGS (1)
  1. EVEROLIMUS [Suspect]
     Active Substance: EVEROLIMUS
     Indication: ASTROCYTOMA, LOW GRADE
     Dosage: 5 MG, UNK
     Route: 065

REACTIONS (4)
  - Lung cyst [Unknown]
  - Drug administered to patient of inappropriate age [Unknown]
  - Pneumonia [Recovering/Resolving]
  - Lung abscess [Recovering/Resolving]

NARRATIVE: CASE EVENT DATE: 201608
